FAERS Safety Report 6300977-3 (Version None)
Quarter: 2009Q3

REPORT INFORMATION
  Report Type: 
  Country: None (occurrence: None)
  Receive Date: 20090806
  Receipt Date: 20090806
  Transmission Date: 20100115
  Serious: Yes (Life-Threatening, Hospitalization, Disabling, Other)
  Sender: FDA-Public Use
  Company Number: None

PATIENT
  Age: 38 Year
  Sex: Male
  Weight: 95.2554 kg

DRUGS (1)
  1. GADOLINIUM CONTRAST DYE [Suspect]

REACTIONS (8)
  - BLOOD PRESSURE FLUCTUATION [None]
  - DYSSTASIA [None]
  - GAIT DISTURBANCE [None]
  - HYPERSENSITIVITY [None]
  - MALAISE [None]
  - OEDEMA PERIPHERAL [None]
  - PAIN IN EXTREMITY [None]
  - SKIN FIBROSIS [None]
